FAERS Safety Report 9462074 (Version 1)
Quarter: 2013Q3

REPORT INFORMATION
  Report Type: Spontaneous
  Country: US (occurrence: None)
  Receive Date: 20130815
  Receipt Date: 20130815
  Transmission Date: 20140515
  Serious: Yes (Hospitalization)
  Sender: FDA-Public Use
  Company Number: None

PATIENT
  Age: 74 None
  Sex: Female
  Weight: 99.2 kg

DRUGS (7)
  1. INSULIN [Suspect]
     Indication: DIABETES MELLITUS
     Dosage: 50 UNITS/30 UNITS Q AM/QPM SQ?CHRONIC
     Route: 058
  2. LIPITOR [Concomitant]
  3. NIASPAN ER [Concomitant]
  4. BENAZEPRIL [Concomitant]
  5. CARVEDILOL [Concomitant]
  6. LASIX [Concomitant]
  7. PLAVIX [Concomitant]

REACTIONS (4)
  - Mental status changes [None]
  - Dysarthria [None]
  - Hypoglycaemia [None]
  - Renal failure acute [None]
